FAERS Safety Report 9204623 (Version 1)
Quarter: 2013Q1

REPORT INFORMATION
  Report Type: Spontaneous
  Country: US (occurrence: None)
  Receive Date: 20120709
  Receipt Date: 20120709
  Transmission Date: 20140127
  Serious: Yes (Death, Hospitalization, Other)
  Sender: FDA-Public Use
  Company Number: PHEH2011US03114

PATIENT
  Age: 53 Year
  Sex: Male
  Weight: 69 kg

DRUGS (1)
  1. GLEEVEC (IMATINIB) UNKNOWN [Suspect]
     Indication: GASTROINTESTINAL STROMAL TUMOUR
     Route: 048

REACTIONS (5)
  - Gastrointestinal stromal tumour [None]
  - Neoplasm malignant [None]
  - Malnutrition [None]
  - Pain [None]
  - Impaired work ability [None]
